FAERS Safety Report 7893444-7 (Version None)
Quarter: 2011Q4

REPORT INFORMATION
  Report Type: 
  Country: None (occurrence: None)
  Receive Date: 20111104
  Receipt Date: 20111004
  Transmission Date: 20120403
  Serious: Yes (Life-Threatening, Hospitalization)
  Sender: FDA-Public Use
  Company Number: US-ROCHE-795145

PATIENT
  Age: 44 Year
  Sex: Female
  Weight: 119.5 kg

DRUGS (19)
  1. NEULASTA [Suspect]
     Indication: PRODUCT USED FOR UNKNOWN INDICATION
     Dosage: LAST DATE ADMINISTERED 25 AUGUST 2011
     Route: 065
  2. DOXORUBICIN HCL [Suspect]
     Indication: BREAST CANCER
     Dosage: OVER 5-30 MIN ON DAY 1 OF WKS 13, 15, 17 AND 19. TOTAL DOSE: 130 MG. LAST DOSE PRIOR SAE 30 JUN 2011
     Route: 042
  3. PROCHLORPERAZINE [Concomitant]
  4. DOXORUBICIN HCL [Suspect]
     Dosage: OVER 5-30 MIN ON DAY 1 OF WKS 13, 15, 17 AND 19. TOTAL DOSE: 106 MG. LAST DOSE PRIOR SAE 25 AUG 2011
     Route: 042
  5. AMBIEN [Concomitant]
  6. PEPCID [Concomitant]
  7. TYLENOL-500 [Concomitant]
  8. AVASTIN [Suspect]
     Indication: BREAST CANCER
     Dosage: OVER 30-90 MINUTES ON 1 DAY OF WEEKS 1,3,5,7,9,11,13,15 AND 17, DOSE: 1200 MG. DOSE INCREASED.
     Route: 042
  9. CYCLOPHOSPHAMIDE [Suspect]
     Dosage: OVER 5-30 MIN ON DAY 1 OF WKS 13, 15, 17 AND 19. TOTAL DOSE: 1055 MG.
     Route: 042
  10. PACLITAXEL [Suspect]
     Indication: BREAST CANCER
     Dosage: OVER 1HOUR ON 1 DAY OF WEEKS 1-12. LAST DOSE PRIOR TO SAE 09 JUN 2011.
     Route: 042
  11. AVASTIN [Suspect]
     Dosage: OVER 30-90 MINUTES ON 1 DAY OF WEEKS 1,3,5,7,9,11,13,15 AND 17, DOSE: 1200 MG. DOSE REDUCED.
     Route: 042
  12. CEFEPIME [Concomitant]
  13. CYCLOPHOSPHAMIDE [Suspect]
     Indication: BREAST CANCER
     Dosage: OVER 5-30 MIN ON DAY 1 OF WKS 13, 15, 17 AND 19. TOTAL DOSE: 1300 MG.
     Route: 042
  14. MUCINEX [Concomitant]
  15. PACLITAXEL [Suspect]
     Dosage: OVER 1HOUR ON 1 DAY OF WEEKS 1-12.
     Route: 042
  16. DIFLUCAN [Concomitant]
  17. TESSALON [Concomitant]
  18. BACITRACIN [Concomitant]
  19. TOPROL-XL [Concomitant]

REACTIONS (8)
  - LYMPHATIC DISORDER [None]
  - WHITE BLOOD CELL COUNT [None]
  - ANAEMIA [None]
  - FEBRILE NEUTROPENIA [None]
  - CARDIAC DISORDER [None]
  - WHITE BLOOD CELL COUNT DECREASED [None]
  - PLATELET COUNT DECREASED [None]
  - DIARRHOEA [None]
